FAERS Safety Report 9275055 (Version 1)
Quarter: 2013Q1

REPORT INFORMATION
  Report Type: Spontaneous
  Country: US (occurrence: None)
  Receive Date: 20130322
  Receipt Date: 20130322
  Transmission Date: 20140127
  Serious: Yes (Other)
  Sender: FDA-Public Use
  Company Number: 2013HINLIT0057

PATIENT
  Sex: Male

DRUGS (1)
  1. LITHIUM (LITHIUM) UNKNOWN [Suspect]
     Route: 064
     Dates: start: 20130210

REACTIONS (1)
  - Feeding disorder neonatal [None]
